FAERS Safety Report 7303874-X (Version None)
Quarter: 2011Q1

REPORT INFORMATION
  Report Type: 
  Country: None (occurrence: None)
  Receive Date: 20110221
  Receipt Date: 20110215
  Transmission Date: 20110831
  Serious: Yes (Hospitalization, Disabling)
  Sender: FDA-Public Use
  Company Number: B0696326A

PATIENT
  Sex: Female

DRUGS (19)
  1. BIAFINE [Concomitant]
     Route: 061
  2. IDEOS [Concomitant]
     Route: 048
     Dates: start: 20100414
  3. CELECTOL [Concomitant]
     Dosage: 1TAB PER DAY
     Route: 048
  4. ATARAX [Concomitant]
     Dosage: 25MG AS REQUIRED
     Route: 048
  5. GLUCOPHAGE [Concomitant]
     Dosage: 1000MG PER DAY
     Route: 048
  6. JANUVIA [Concomitant]
     Dosage: 1TAB PER DAY
     Route: 048
     Dates: start: 20100113
  7. GAVISCON [Concomitant]
     Dosage: 2SAC PER DAY
     Route: 048
     Dates: start: 20080529
  8. NISISCO [Concomitant]
     Dosage: 80MG PER DAY
     Route: 048
  9. PROZAC [Concomitant]
     Dosage: 20MG PER DAY
     Route: 048
     Dates: start: 20091022
  10. MOPRAL [Concomitant]
     Dosage: 20MG PER DAY
     Route: 048
     Dates: start: 20100113
  11. AVANDAMET [Suspect]
     Route: 048
     Dates: start: 20040301, end: 20100801
  12. DEXERYL (FRANCE) [Concomitant]
     Route: 061
  13. LEXOMIL [Concomitant]
     Route: 048
  14. NEXIUM [Concomitant]
     Dosage: 20MG PER DAY
     Route: 048
     Dates: start: 20100512
  15. LEVOTHYROX [Concomitant]
     Dosage: 112.5MCG PER DAY
     Route: 048
  16. TARDYFERON [Concomitant]
     Route: 048
  17. DAFALGAN [Concomitant]
  18. CRESTOR [Concomitant]
     Dosage: 5MG PER DAY
     Route: 048
     Dates: start: 20100512
  19. ZALDIAR [Concomitant]
     Route: 048

REACTIONS (8)
  - FATIGUE [None]
  - TACHYCARDIA [None]
  - CHEST PAIN [None]
  - CARDIAC FAILURE [None]
  - TREMOR [None]
  - DYSPNOEA [None]
  - MALAISE [None]
  - CYANOSIS [None]
